FAERS Safety Report 10654444 (Version 1)
Quarter: 2014Q4

REPORT INFORMATION
  Report Type: Spontaneous
  Country: DE (occurrence: DE)
  Receive Date: 20141216
  Receipt Date: 20141216
  Transmission Date: 20150529
  Serious: Yes (Life-Threatening)
  Sender: FDA-Public Use
  Company Number: DE-BEH-2014047070

PATIENT
  Sex: Female

DRUGS (3)
  1. CINRYZE [Suspect]
     Active Substance: HUMAN C1-ESTERASE INHIBITOR
  2. BERINERT [Suspect]
     Active Substance: HUMAN C1-ESTERASE INHIBITOR
     Indication: HEREDITARY ANGIOEDEMA
  3. OTHER HAEMATOLOGICAL AGENTS [Suspect]
     Active Substance: UNSPECIFIED INGREDIENT

REACTIONS (7)
  - Adverse reaction [Unknown]
  - Abdominal pain upper [Unknown]
  - Medication error [Unknown]
  - Acquired Von Willebrand^s disease [Unknown]
  - Therapy cessation [Unknown]
  - Von Willebrand^s factor activity normal [Unknown]
  - Oedema [Unknown]

NARRATIVE: CASE EVENT DATE: 201306
